FAERS Safety Report 8584342-4 (Version None)
Quarter: 2012Q3

REPORT INFORMATION
  Report Type: 
  Country: None (occurrence: None)
  Receive Date: 20120810
  Receipt Date: 20120802
  Transmission Date: 20120928
  Serious: No
  Sender: FDA-Public Use
  Company Number: US-BIOGENIDEC-2012BI029221

PATIENT
  Age: 44 Month
  Sex: Female

DRUGS (6)
  1. AVONEX [Concomitant]
     Route: 030
     Dates: start: 19990415
  2. TYSABRI [Suspect]
     Indication: MULTIPLE SCLEROSIS
     Route: 042
     Dates: start: 20120706
  3. AVONEX [Concomitant]
     Indication: MULTIPLE SCLEROSIS
     Route: 030
  4. CAFFEINE CITRATE [Concomitant]
     Indication: HEADACHE
  5. BUTALBITAL [Concomitant]
     Indication: HEADACHE
  6. ASPIRIN [Concomitant]
     Indication: HEADACHE

REACTIONS (1)
  - HEADACHE [None]
